FAERS Safety Report 12518698 (Version 1)
Quarter: 2016Q2

REPORT INFORMATION
  Report Type: Spontaneous
  Country: BR (occurrence: BR)
  Receive Date: 20160630
  Receipt Date: 20160630
  Transmission Date: 20160815
  Serious: Yes (Hospitalization, Other)
  Sender: FDA-Public Use
  Company Number: BR-PFIZER INC-2016320117

PATIENT
  Age: 79 Year
  Sex: Female
  Weight: 45 kg

DRUGS (6)
  1. ENALAPRIL [Concomitant]
     Active Substance: ENALAPRIL
     Dosage: 5 MG, DAILY
     Route: 048
     Dates: start: 201605
  2. SUSTRATE [Concomitant]
     Active Substance: PROPATYL NITRATE
     Indication: BLOOD PRESSURE MEASUREMENT
     Dosage: 3 DF, DAILY
     Route: 048
     Dates: start: 20160525
  3. LIPITOR [Suspect]
     Active Substance: ATORVASTATIN CALCIUM
     Dosage: UNK
     Route: 048
     Dates: start: 201605
  4. ASPIRINA PREVENT [Concomitant]
     Active Substance: ASPIRIN
     Indication: BLOOD DISORDER
     Dosage: 1 DF, 1X/DAY (AFTER LUNCH)
     Route: 048
     Dates: start: 20160525
  5. BASIC [Concomitant]
     Dosage: 1 DF, DAILY
     Route: 048
     Dates: start: 20160525
  6. CARVEDILOL. [Concomitant]
     Active Substance: CARVEDILOL
     Dosage: 1 DF, DAILY
     Route: 048
     Dates: start: 20160525

REACTIONS (2)
  - Pulmonary oedema [Unknown]
  - Infarction [Unknown]

NARRATIVE: CASE EVENT DATE: 2016
